FAERS Safety Report 17823206 (Version 1)
Quarter: 2020Q2

REPORT INFORMATION
  Report Type: Spontaneous
  Country: US (occurrence: US)
  Receive Date: 20200522
  Receipt Date: 20200522
  Transmission Date: 20200714
  Serious: No
  Sender: FDA-Public Use
  Company Number: None

PATIENT
  Age: 35 Year
  Sex: Male

DRUGS (2)
  1. OLD SPICE HIGH ENDURANCE PURE SPORT (ALUMINUM ZIRCONIUM TRICHLOROHYDREX GLY) [Suspect]
     Active Substance: ALUMINUM ZIRCONIUM TRICHLOROHYDREX GLY
     Dosage: 1 APPLICATION 1/DAY
     Dates: start: 202004, end: 202004
  2. OLD SPICE  SHOWER + BATH LIQUID BODY WASH RED COLLECTION NO VERSION AFTER HOURS 473ML 1 [Suspect]
     Active Substance: COSMETICS

REACTIONS (5)
  - Dermatitis contact [None]
  - Skin burning sensation [None]
  - Chemical burn of skin [None]
  - Musculoskeletal disorder [None]
  - Pain of skin [None]
